FAERS Safety Report 16092562 (Version 2)
Quarter: 2019Q2

REPORT INFORMATION
  Report Type: Spontaneous
  Country: CH (occurrence: CH)
  Receive Date: 20190319
  Receipt Date: 20190420
  Transmission Date: 20190711
  Serious: Yes (Hospitalization, Other)
  Sender: FDA-Public Use
  Company Number: CH-AMGEN-CHESP2019039753

PATIENT
  Age: 82 Year
  Sex: Female

DRUGS (1)
  1. PROLIA [Suspect]
     Active Substance: DENOSUMAB
     Indication: OSTEOPOROSIS
     Dosage: 60 MILLIGRAM
     Route: 058
     Dates: start: 2014

REACTIONS (5)
  - Ureteric stenosis [Unknown]
  - Ovarian cancer recurrent [Not Recovered/Not Resolved]
  - Large intestinal stenosis [Unknown]
  - Small intestinal stenosis [Unknown]
  - Gastrointestinal hypomotility [Unknown]

NARRATIVE: CASE EVENT DATE: 2019
